FAERS Safety Report 15566777 (Version 3)
Quarter: 2019Q2

REPORT INFORMATION
  Report Type: Spontaneous
  Country: CA (occurrence: CA)
  Receive Date: 20181030
  Receipt Date: 20190528
  Transmission Date: 20190711
  Serious: Yes (Hospitalization, Other)
  Sender: FDA-Public Use
  Company Number: CA-PFIZER INC-2018413358

PATIENT
  Age: 51 Year
  Sex: Female
  Weight: 91 kg

DRUGS (4)
  1. IBUPROFEN. [Concomitant]
     Active Substance: IBUPROFEN
     Dosage: UNK
  2. SYNTHROID [Concomitant]
     Active Substance: LEVOTHYROXINE SODIUM
     Indication: HYPOTHYROIDISM
     Dosage: UNK
     Route: 048
     Dates: start: 201308
  3. XELJANZ [Suspect]
     Active Substance: TOFACITINIB CITRATE
     Indication: RHEUMATOID ARTHRITIS
     Dosage: 5 MG, 2X/DAY
     Route: 048
     Dates: start: 20180920
  4. AMITRIPTYLINE [Concomitant]
     Active Substance: AMITRIPTYLINE
     Indication: FIBROMYALGIA
     Dosage: UNK
     Route: 048
     Dates: start: 201601

REACTIONS (3)
  - Kidney infection [Unknown]
  - Drug ineffective [Recovered/Resolved]
  - Red blood cell count decreased [Recovering/Resolving]
